FAERS Safety Report 6141469-4 (Version None)
Quarter: 2009Q2

REPORT INFORMATION
  Report Type: 
  Country: None (occurrence: None)
  Receive Date: 20090402
  Receipt Date: 20090326
  Transmission Date: 20091009
  Serious: Yes (Other)
  Sender: FDA-Public Use
  Company Number: PHHY2009GB11459

PATIENT
  Age: 8 Year

DRUGS (4)
  1. CYCLOSPORINE [Suspect]
     Indication: STEM CELL TRANSPLANT
  2. CYCLOPHOSPHAMIDE [Concomitant]
  3. BUSULPHAN [Concomitant]
  4. ALEMTUZUMAB [Concomitant]

REACTIONS (6)
  - ACUTE GRAFT VERSUS HOST DISEASE IN SKIN [None]
  - ADENOVIRUS INFECTION [None]
  - ANAEMIA HAEMOLYTIC AUTOIMMUNE [None]
  - CYTOMEGALOVIRUS INFECTION [None]
  - NEUTROPENIA [None]
  - THROMBOCYTOPENIA [None]
